FAERS Safety Report 7490380-5 (Version None)
Quarter: 2011Q2

REPORT INFORMATION
  Report Type: 
  Country: None (occurrence: None)
  Receive Date: 20110517
  Receipt Date: 20110517
  Transmission Date: 20111010
  Serious: Yes (Hospitalization)
  Sender: FDA-Public Use
  Company Number: None

PATIENT
  Age: 61 Year
  Sex: Male
  Weight: 82.7 kg

DRUGS (8)
  1. TRIAMCINOLONE [Concomitant]
  2. HYDROXYZINE [Concomitant]
  3. CERTIRIZINE [Concomitant]
  4. RITUXIMAB [Suspect]
     Indication: CHRONIC LYMPHOCYTIC LEUKAEMIA
     Dosage: 375MG/M2, DAY 1, IV
     Route: 042
     Dates: start: 20110315
  5. RITUXIMAB [Suspect]
     Indication: B-CELL SMALL LYMPHOCYTIC LYMPHOMA
     Dosage: 375MG/M2, DAY 1, IV
     Route: 042
     Dates: start: 20110315
  6. VORICONAZOLE [Concomitant]
  7. BENDAMUSTINE [Suspect]
     Indication: CHRONIC LYMPHOCYTIC LEUKAEMIA
     Dosage: 90MG/M2, DAYS 1+2, IV
     Route: 042
     Dates: start: 20110314, end: 20110315
  8. BENDAMUSTINE [Suspect]
     Indication: B-CELL SMALL LYMPHOCYTIC LYMPHOMA
     Dosage: 90MG/M2, DAYS 1+2, IV
     Route: 042
     Dates: start: 20110314, end: 20110315

REACTIONS (2)
  - SKIN ULCER [None]
  - BLISTER [None]
